FAERS Safety Report 6771098-0 (Version None)
Quarter: 2010Q2

REPORT INFORMATION
  Report Type: 
  Country: None (occurrence: None)
  Receive Date: 20100616
  Receipt Date: 20100607
  Transmission Date: 20101027
  Serious: Yes (Other)
  Sender: FDA-Public Use
  Company Number: US-JNJFOC-20100604128

PATIENT
  Age: 28 Year
  Sex: Male

DRUGS (3)
  1. IMODIUM [Suspect]
     Route: 048
  2. IMODIUM [Suspect]
     Indication: GASTRITIS
     Route: 048
  3. ZANTAC [Suspect]
     Indication: GASTRITIS
     Route: 048

REACTIONS (1)
  - ANAPHYLACTIC REACTION [None]
